FAERS Safety Report 16067273 (Version 3)
Quarter: 2019Q2

REPORT INFORMATION
  Report Type: Report from Study
  Country: KW (occurrence: KW)
  Receive Date: 20190313
  Receipt Date: 20190617
  Transmission Date: 20190711
  Serious: Yes (Other)
  Sender: FDA-Public Use
  Company Number: PHHY2019KW055860

PATIENT
  Age: 35 Year
  Sex: Female

DRUGS (2)
  1. KISQALI [Suspect]
     Active Substance: RIBOCICLIB
     Indication: BREAST CANCER METASTATIC
     Dosage: 600 MG, QD
     Route: 048
     Dates: start: 20190213
  2. KISQALI [Suspect]
     Active Substance: RIBOCICLIB
     Dosage: 600 MG, QD
     Route: 048
     Dates: start: 20190515

REACTIONS (6)
  - Snoring [Unknown]
  - Pain in extremity [Unknown]
  - Dyspnoea [Unknown]
  - Neutropenia [Recovered/Resolved]
  - Haemoptysis [Unknown]
  - Movement disorder [Unknown]

NARRATIVE: CASE EVENT DATE: 201902
